FAERS Safety Report 14977679 (Version 1)
Quarter: 2018Q2

REPORT INFORMATION
  Report Type: Spontaneous
  Country: US (occurrence: US)
  Receive Date: 20180515
  Receipt Date: 20180515
  Transmission Date: 20180711
  Serious: Yes (Hospitalization)
  Sender: FDA-Public Use
  Company Number: None

PATIENT
  Age: 65 Year
  Sex: Male
  Weight: 94.5 kg

DRUGS (8)
  1. OPDIVO [Suspect]
     Active Substance: NIVOLUMAB
     Indication: RENAL CELL CARCINOMA
     Dosage: ?          OTHER FREQUENCY:EVERY MONTH;OTHER ROUTE:INTRAVENOUS DRIP?
     Route: 041
  2. FISH OIL [Concomitant]
     Active Substance: FISH OIL
  3. TUMERIC [Concomitant]
     Active Substance: HERBALS\TURMERIC
  4. 81 MG ASPIRIN [Concomitant]
     Active Substance: ASPIRIN
  5. MULTI VITAMIN [Concomitant]
     Active Substance: VITAMINS
  6. CALCIUM [Concomitant]
     Active Substance: CALCIUM
  7. KLOR KON [Concomitant]
  8. VITAMIN D [Concomitant]
     Active Substance: CHOLECALCIFEROL

REACTIONS (6)
  - Dehydration [None]
  - Drug ineffective [None]
  - Diarrhoea [None]
  - Prescribed overdose [None]
  - Vomiting [None]
  - Asthenia [None]

NARRATIVE: CASE EVENT DATE: 20180406
